FAERS Safety Report 21084111 (Version 1)
Quarter: 2022Q3

REPORT INFORMATION
  Report Type: Spontaneous
  Country: US (occurrence: US)
  Receive Date: 20220714
  Receipt Date: 20220714
  Transmission Date: 20221026
  Serious: No
  Sender: FDA-Public Use
  Company Number: US-JAZZ-202110USGW04905

PATIENT
  Sex: Male
  Weight: 74.376 kg

DRUGS (2)
  1. EPIDIOLEX [Suspect]
     Active Substance: CANNABIDIOL
     Indication: Epilepsy
     Dosage: 450 MILLIGRAM, FREQUENCY NOT REPORTED
     Route: 048
     Dates: start: 201906
  2. EPIDIOLEX [Suspect]
     Active Substance: CANNABIDIOL
     Indication: Lennox-Gastaut syndrome
     Dosage: 2 MILLILITER AND 2.5 ML IN THE EVENING
     Route: 048
     Dates: start: 20210203

REACTIONS (1)
  - Emergency care [Unknown]
